FAERS Safety Report 5740152-4 (Version None)
Quarter: 2008Q2

REPORT INFORMATION
  Report Type: 
  Country: None (occurrence: None)
  Receive Date: 20080513
  Receipt Date: 20080508
  Transmission Date: 20081010
  Serious: Yes (Other)
  Sender: FDA-Public Use
  Company Number: 2008-02925

PATIENT
  Age: 3 Year
  Sex: Female

DRUGS (4)
  1. FIORICET [Suspect]
     Indication: DRUG USE FOR UNKNOWN INDICATION
  2. VALPROIC ACID [Suspect]
     Indication: ILL-DEFINED DISORDER
     Dosage: 27 MG/KG, DAILY,
  3. TOPIRAMATE [Suspect]
     Indication: ILL-DEFINED DISORDER
     Dosage: 8.4 MG/KG, DAILY,
  4. CLOBAZAM (CLOBAZAM) [Concomitant]

REACTIONS (4)
  - ALANINE AMINOTRANSFERASE INCREASED [None]
  - ASPARTATE AMINOTRANSFERASE INCREASED [None]
  - HEPATOTOXICITY [None]
  - INHIBITORY DRUG INTERACTION [None]
